FAERS Safety Report 10625444 (Version 1)
Quarter: 2014Q4

REPORT INFORMATION
  Report Type: Report from Study
  Country: JP (occurrence: None)
  Receive Date: 20141202
  Receipt Date: 20141202
  Transmission Date: 20150529
  Serious: Yes (Life-Threatening, Hospitalization, Other)
  Sender: FDA-Public Use
  Company Number: A200705680

PATIENT
  Age: 7 Decade
  Sex: Male
  Weight: 65 kg

DRUGS (15)
  1. LAMIVUDINE (LAMIVUDINE) TABLET [Suspect]
     Active Substance: LAMIVUDINE
     Indication: HIV INFECTION
     Route: 048
     Dates: start: 20060607, end: 20060620
  2. REYATAZ [Concomitant]
     Active Substance: ATAZANAVIR SULFATE
  3. EPADEL (ETHYL ICOSAPENTATE) [Concomitant]
     Active Substance: ETHYL ICOSAPENTATE
  4. ABACAVIR SULPHATE [Suspect]
     Active Substance: ABACAVIR
     Indication: HIV INFECTION
     Route: 048
     Dates: start: 20110419
  5. NORVIR SOFT (RITONAVIR) [Concomitant]
  6. ZERIT (STAVUDINE) [Concomitant]
  7. ZITHROMAC (AZITHROMYCIN) [Concomitant]
  8. PRAVASTAN (PRAVASTATIN SODIUM) [Concomitant]
  9. KALETRA (LOPINAVIR + RETONAVIR) [Concomitant]
  10. PERSANTIN (DIPYRIDAMOLE) [Concomitant]
  11. BASEN (VOGLIBOSE) [Concomitant]
  12. ADALAT (NIFEDIPINE) [Concomitant]
  13. FOSAMPRENAVIR [Suspect]
     Active Substance: FOSAMPRENAVIR
     Indication: HIV INFECTION
     Route: 048
     Dates: start: 20060905, end: 20110418
  14. ISENTRESS [Suspect]
     Active Substance: RALTEGRAVIR POTASSIUM
     Route: 048
     Dates: start: 20110419, end: 20131023
  15. CRESTOR [Concomitant]
     Active Substance: ROSUVASTATIN CALCIUM

REACTIONS (6)
  - Cerebral haemorrhage [None]
  - Renal impairment [None]
  - Glucose tolerance impaired [None]
  - Hemiplegia [None]
  - Dyslalia [None]
  - Putamen haemorrhage [None]

NARRATIVE: CASE EVENT DATE: 20061110
